FAERS Safety Report 16275267 (Version 5)
Quarter: 2019Q3

REPORT INFORMATION
  Report Type: Report from Study
  Country: DE (occurrence: DE)
  Receive Date: 20190504
  Receipt Date: 20190925
  Transmission Date: 20191004
  Serious: Yes (Hospitalization)
  Sender: FDA-Public Use
  Company Number: PHHY2019DE098449

PATIENT
  Sex: Female
  Weight: 70 kg

DRUGS (2)
  1. KISQALI [Suspect]
     Active Substance: RIBOCICLIB
     Indication: BREAST CANCER
     Dosage: 3 DF (200 MG) (3-0-0), UNK
     Route: 048
     Dates: start: 20181016, end: 20190307
  2. EXEMESTANE. [Suspect]
     Active Substance: EXEMESTANE
     Indication: BREAST CANCER
     Dosage: 25 MG (1-0-0), UNK
     Route: 048
     Dates: start: 20181016

REACTIONS (6)
  - Skin exfoliation [Unknown]
  - Rash [Recovered/Resolved]
  - Device related infection [Recovering/Resolving]
  - Staphylococcus test positive [Recovered/Resolved]
  - White blood cell count increased [Unknown]
  - Peripheral swelling [Unknown]

NARRATIVE: CASE EVENT DATE: 201903
